FAERS Safety Report 12988661 (Version 1)
Quarter: 2016Q4

REPORT INFORMATION
  Report Type: Spontaneous
  Country: US (occurrence: US)
  Receive Date: 20161130
  Receipt Date: 20161130
  Transmission Date: 20170207
  Serious: No
  Sender: FDA-Public Use
  Company Number: US-TEIKOKU PHARMA USA-TPU2016-00813

PATIENT
  Sex: Male
  Weight: 84.44 kg

DRUGS (3)
  1. LIDOCAINE PATCH [Suspect]
     Active Substance: LIDOCAINE
     Indication: HERNIA
  2. LIDOCAINE PATCH [Suspect]
     Active Substance: LIDOCAINE
     Indication: ARTHRALGIA
     Dosage: 3 PATCHES OR MORE FOR 24 COUNTINUOUS HOURS TO THE HERNIA
  3. LIDOCAINE PATCH [Suspect]
     Active Substance: LIDOCAINE
     Indication: BACK PAIN
     Dosage: 3 PATCHES ON BACK AND HIP 12 HOURS ON AND OFF FOR 12 HOURS FOR BACK AND HIP PAIN
     Route: 061
     Dates: start: 1996

REACTIONS (3)
  - Electrocardiogram abnormal [Unknown]
  - Incorrect drug administration duration [Unknown]
  - Incorrect dose administered [Unknown]
